FAERS Safety Report 23227801 (Version 2)
Quarter: 2023Q4

REPORT INFORMATION
  Report Type: Spontaneous
  Country: JP (occurrence: JP)
  Receive Date: 20231125
  Receipt Date: 20231211
  Transmission Date: 20240109
  Serious: Yes (Life-Threatening, Hospitalization, Other)
  Sender: FDA-Public Use
  Company Number: JP-MACLEODS PHARMACEUTICALS US LTD-MAC2023044394

PATIENT

DRUGS (9)
  1. METFORMIN [Suspect]
     Active Substance: METFORMIN HYDROCHLORIDE
     Indication: Type 2 diabetes mellitus
     Dosage: UNK
     Route: 048
  2. ALCOHOL [Suspect]
     Active Substance: ALCOHOL
     Indication: Product used for unknown indication
     Dosage: 216 GRAM, QD
     Route: 065
  3. NATEGLINIDE [Concomitant]
     Active Substance: NATEGLINIDE
     Indication: Product used for unknown indication
     Dosage: UNK
     Route: 048
  4. MIGLITOL [Concomitant]
     Active Substance: MIGLITOL
     Indication: Product used for unknown indication
     Dosage: UNK
     Route: 048
  5. Graquib [Concomitant]
     Indication: Product used for unknown indication
     Dosage: UNK
     Route: 048
  6. Irbesarta [Concomitant]
     Indication: Product used for unknown indication
     Dosage: UNK
     Route: 048
  7. AMLODIPINE [Concomitant]
     Active Substance: AMLODIPINE BESYLATE
     Indication: Product used for unknown indication
     Dosage: UNK
     Route: 048
  8. BISOPROLOL [Concomitant]
     Active Substance: BISOPROLOL\BISOPROLOL FUMARATE
     Indication: Product used for unknown indication
     Dosage: UNK
     Route: 048
  9. ESOMEPRAZOLE [Concomitant]
     Active Substance: ESOMEPRAZOLE
     Indication: Product used for unknown indication
     Dosage: UNK
     Route: 048

REACTIONS (3)
  - Circulatory collapse [Unknown]
  - Alcoholic ketoacidosis [Recovered/Resolved]
  - Lactic acidosis [Recovered/Resolved]
